FAERS Safety Report 4687506-5 (Version None)
Quarter: 2005Q2

REPORT INFORMATION
  Report Type: 
  Country: None (occurrence: None)
  Receive Date: 20050609
  Receipt Date: 20020830
  Transmission Date: 20051028
  Serious: Yes (Hospitalization)
  Sender: FDA-Public Use
  Company Number: NL-SANOFI-SYNTHELABO-D01200200434

PATIENT
  Sex: Male
  Weight: 87 kg

DRUGS (2)
  1. ALFUZOSIN [Suspect]
     Route: 048
     Dates: start: 20020601, end: 20040708
  2. SELOKEN [Concomitant]
     Dosage: 50 MG
     Route: 065
     Dates: start: 20020510

REACTIONS (5)
  - ACUTE MYOCARDIAL INFARCTION [None]
  - CORONARY ARTERY OCCLUSION [None]
  - CORONARY ARTERY STENOSIS [None]
  - FATIGUE [None]
  - MYOCARDIAL INFARCTION [None]
